FAERS Safety Report 9733085 (Version 1)
Quarter: 2013Q4

REPORT INFORMATION
  Report Type: Spontaneous
  Country: BR (occurrence: BR)
  Receive Date: 20131205
  Receipt Date: 20131205
  Transmission Date: 20140711
  Serious: Yes (Other)
  Sender: FDA-Public Use
  Company Number: BR-JNJFOC-20131118426

PATIENT
  Age: 19 Year
  Sex: Female
  Weight: 65 kg

DRUGS (3)
  1. MICRONOR [Suspect]
     Indication: CONTRACEPTION
     Dosage: USED FOR A MONTH
     Route: 065
  2. MICRONOR [Suspect]
     Indication: CONTRACEPTION
     Dosage: USED FOR A MONTH
     Route: 065
     Dates: start: 201307, end: 201308
  3. FOLIC ACID [Concomitant]
     Indication: ANAEMIA
     Route: 065

REACTIONS (4)
  - Urinary tract infection [Recovered/Resolved]
  - Vaginal discharge [Recovered/Resolved]
  - Influenza [Recovered/Resolved]
  - Headache [Recovered/Resolved]
